FAERS Safety Report 6763931-3 (Version None)
Quarter: 2010Q2

REPORT INFORMATION
  Report Type: 
  Country: None (occurrence: None)
  Receive Date: 20100610
  Receipt Date: 20100603
  Transmission Date: 20101027
  Serious: Yes (Other)
  Sender: FDA-Public Use
  Company Number: JP-BRISTOL-MYERS SQUIBB COMPANY-15139025

PATIENT
  Age: 28 Year
  Sex: Male

DRUGS (2)
  1. ABILIFY [Suspect]
     Route: 048
  2. RIVOTRIL [Concomitant]

REACTIONS (1)
  - HICCUPS [None]
